FAERS Safety Report 22159656 (Version 1)
Quarter: 2023Q1

REPORT INFORMATION
  Report Type: Other
  Country: BE (occurrence: None)
  Receive Date: 20230331
  Receipt Date: 20230331
  Transmission Date: 20230418
  Serious: Yes (Hospitalization)
  Sender: FDA-Public Use
  Company Number: BE-ROCHE-3319193

PATIENT
  Age: 72 Year
  Sex: Male

DRUGS (11)
  1. RITUXIMAB [Suspect]
     Active Substance: RITUXIMAB
     Indication: Follicular lymphoma
     Route: 065
  2. CYCLOPHOSPHAMIDE [Suspect]
     Active Substance: CYCLOPHOSPHAMIDE
     Indication: Follicular lymphoma
     Route: 065
  3. DOXORUBICIN [Suspect]
     Active Substance: DOXORUBICIN
     Indication: Follicular lymphoma
     Route: 065
  4. VINCRISTINE [Suspect]
     Active Substance: VINCRISTINE
     Indication: Follicular lymphoma
     Route: 065
  5. PREDNISONE [Suspect]
     Active Substance: PREDNISONE
     Indication: Follicular lymphoma
     Route: 065
  6. AMIODARONE [Concomitant]
     Active Substance: AMIODARONE
     Indication: Atrial fibrillation
     Dosage: DAY 1: 0.65 MG/L ; ON DAY 0: 0.84MG/L; ON DAY 1: 0.78 MG/L; ON DAY 6: 0.61 MG/L
  7. APIXABAN [Concomitant]
     Active Substance: APIXABAN
     Indication: Atrial fibrillation
  8. NIRMATRELVIR\RITONAVIR [Concomitant]
     Active Substance: NIRMATRELVIR\RITONAVIR
     Indication: COVID-19 pneumonia
  9. NADROPARIN [Concomitant]
     Active Substance: NADROPARIN
  10. AMIODARONE [Concomitant]
     Active Substance: AMIODARONE
  11. RITONAVIR [Concomitant]
     Active Substance: RITONAVIR

REACTIONS (2)
  - COVID-19 [Recovered/Resolved]
  - COVID-19 pneumonia [Recovered/Resolved]
